FAERS Safety Report 9819888 (Version 1)
Quarter: 2013Q1

REPORT INFORMATION
  Report Type: Spontaneous
  Country: US (occurrence: None)
  Receive Date: 20130107
  Receipt Date: 20130107
  Transmission Date: 20140127
  Serious: Yes (Other)
  Sender: FDA-Public Use
  Company Number: PHEH2012US019154

PATIENT
  Age: 43 Year
  Sex: Female

DRUGS (10)
  1. GILENYA [Suspect]
     Route: 048
     Dates: start: 20120911
  2. LEVOTHYROXINE (LEVOTHYROXINE) [Concomitant]
  3. OMEPRAZOLE (OMEPRAZOLE) [Concomitant]
  4. CENTRUM (MINERALS NOS, VITAMINS NOS) [Concomitant]
  5. ADVIL (MEFENAMIC ACID) [Concomitant]
  6. TYLENOL (PARACETAMOL) [Concomitant]
  7. WELLBUTRIN (BUPROPION HYDROCHLORIDE) [Concomitant]
  8. CITALOPRAM (CITALOPRAM) [Concomitant]
  9. BACLOFEN (BACLOFEN) [Concomitant]
  10. APRI (DESOGESTREL, ETHINYLESTRADIOL) [Concomitant]

REACTIONS (2)
  - Oropharyngeal pain [None]
  - Nasopharyngitis [None]
